FAERS Safety Report 10103621 (Version 2)
Quarter: 2014Q2

REPORT INFORMATION
  Report Type: Spontaneous
  Country: US (occurrence: US)
  Receive Date: 20140424
  Receipt Date: 20140529
  Transmission Date: 20141212
  Serious: Yes (Other)
  Sender: FDA-Public Use
  Company Number: US-TARO-2014P1003003

PATIENT
  Age: 59 Year
  Sex: Female

DRUGS (8)
  1. WARFARIN SODIUM TABLETS USP 5MG [Suspect]
     Indication: PULMONARY EMBOLISM
     Route: 048
     Dates: start: 20131215, end: 201403
  2. WARFARIN SODIUM TABLETS USP 5MG [Suspect]
     Indication: THROMBOSIS
     Route: 048
     Dates: start: 20131215, end: 201403
  3. WARFARIN SODIUM TABLETS USP 5MG [Suspect]
     Indication: PULMONARY EMBOLISM
     Route: 048
     Dates: start: 201403
  4. WARFARIN SODIUM TABLETS USP 5MG [Suspect]
     Indication: THROMBOSIS
     Route: 048
     Dates: start: 201403
  5. WARFARIN SODIUM TABLETS USP 5MG [Suspect]
     Indication: PULMONARY EMBOLISM
     Route: 048
     Dates: start: 201403
  6. WARFARIN SODIUM TABLETS USP 5MG [Suspect]
     Indication: THROMBOSIS
     Route: 048
     Dates: start: 201403
  7. UNSPECIFIED MEDICATIONS [Concomitant]
  8. OMEPRAZOLE [Concomitant]
     Dates: end: 201403

REACTIONS (8)
  - Hepatomegaly [Not Recovered/Not Resolved]
  - Nausea [Not Recovered/Not Resolved]
  - Vomiting [Recovering/Resolving]
  - Alopecia [Recovering/Resolving]
  - Oesophageal ulcer [Unknown]
  - Gastrooesophageal reflux disease [Unknown]
  - Hiatus hernia [Unknown]
  - Oesophagitis [Unknown]
